FAERS Safety Report 6704528-0 (Version None)
Quarter: 2010Q2

REPORT INFORMATION
  Report Type: 
  Country: None (occurrence: None)
  Receive Date: 20100430
  Receipt Date: 20100420
  Transmission Date: 20101027
  Serious: Yes (Other)
  Sender: FDA-Public Use
  Company Number: PHHY2010US25818

PATIENT

DRUGS (1)
  1. RECLAST [Suspect]

REACTIONS (3)
  - ARTHRALGIA [None]
  - INFLUENZA LIKE ILLNESS [None]
  - SERUM SICKNESS [None]
